FAERS Safety Report 19491274 (Version 1)
Quarter: 2021Q3

REPORT INFORMATION
  Report Type: Spontaneous
  Country: CN (occurrence: CN)
  Receive Date: 20210705
  Receipt Date: 20210705
  Transmission Date: 20211014
  Serious: Yes (Death, Hospitalization)
  Sender: FDA-Public Use
  Company Number: CN-STRIDES ARCOLAB LIMITED-2021SP007205

PATIENT
  Age: 42 Year
  Sex: Male

DRUGS (6)
  1. BIAPENEM [Suspect]
     Active Substance: BIAPENEM
     Indication: ANTI-INFECTIVE THERAPY
     Dosage: 0.6 MILLIGRAM, EVERY 12 HRS
     Route: 065
  2. LINEZOLID. [Suspect]
     Active Substance: LINEZOLID
     Indication: ANTI-INFECTIVE THERAPY
     Dosage: 600 MILLIGRAM, EVERY 12 HRS
     Route: 065
  3. SODIUM VALPROATE [Suspect]
     Active Substance: VALPROATE SODIUM
     Indication: EPILEPSY
     Dosage: 1.2 GRAM PER DAY
     Route: 065
  4. VANCOMYCIN [Suspect]
     Active Substance: VANCOMYCIN
     Indication: ANTI-INFECTIVE THERAPY
     Dosage: 1000 MILLIGRAM, EVERY 12 HRS
     Route: 065
  5. SODIUM VALPROATE [Suspect]
     Active Substance: VALPROATE SODIUM
     Dosage: 1.6 GRAM PER DAY
     Route: 065
  6. CEFTRIAXONE. [Concomitant]
     Active Substance: CEFTRIAXONE
     Indication: ANTI-INFECTIVE THERAPY
     Dosage: 2 GRAM, EVERY 12 HRS
     Route: 065

REACTIONS (2)
  - Drug-induced liver injury [Fatal]
  - Thrombotic microangiopathy [Unknown]
